FAERS Safety Report 8599843 (Version 2)
Quarter: 2014Q1

REPORT INFORMATION
  Report Type: Spontaneous
  Country: US (occurrence: US)
  Receive Date: 20120605
  Receipt Date: 20140325
  Transmission Date: 20141002
  Serious: No
  Sender: FDA-Public Use
  Company Number: US-ASTRAZENECA-2012SE31493

PATIENT
  Age: 63 Year
  Sex: Male
  Weight: 147.4 kg

DRUGS (7)
  1. BRILINTA [Suspect]
     Indication: STENT PLACEMENT
     Route: 048
     Dates: start: 201203
  2. METOPROLOL TARTRATE [Suspect]
     Route: 048
  3. GLIPIZIDE [Concomitant]
     Indication: DIABETES MELLITUS
  4. JANUVIA [Concomitant]
     Indication: DIABETES MELLITUS
  5. PRAVASTATIN [Concomitant]
     Indication: BLOOD CHOLESTEROL ABNORMAL
  6. ASPIRIN [Concomitant]
     Indication: STENT PLACEMENT
  7. PROAIR [Concomitant]
     Indication: LUNG DISORDER
     Route: 055

REACTIONS (4)
  - Asthma [Unknown]
  - Chronic obstructive pulmonary disease [Unknown]
  - Cardiac disorder [Unknown]
  - Dyspnoea [Not Recovered/Not Resolved]
